FAERS Safety Report 7403698-9 (Version None)
Quarter: 2011Q2

REPORT INFORMATION
  Report Type: 
  Country: None (occurrence: None)
  Receive Date: 20110408
  Receipt Date: 20110331
  Transmission Date: 20111010
  Serious: Yes (Hospitalization)
  Sender: FDA-Public Use
  Company Number: PHHO2011FR04380

PATIENT
  Sex: Male
  Weight: 57.2 kg

DRUGS (3)
  1. CYCLOSPORINE [Suspect]
     Indication: RENAL TRANSPLANT
     Dosage: 3 MG, DAILY
     Route: 048
     Dates: start: 20101129
  2. CELLCEPT [Concomitant]
     Indication: RENAL TRANSPLANT
     Dosage: 2 G, DAILY
     Route: 048
     Dates: start: 20101124
  3. CORTANCYL [Concomitant]
     Indication: RENAL TRANSPLANT
     Dosage: 10 MG, DAILY
     Route: 048
     Dates: start: 20101201

REACTIONS (3)
  - LUNG DISORDER [None]
  - DYSPNOEA EXERTIONAL [None]
  - PYREXIA [None]
